FAERS Safety Report 4315201-0 (Version None)
Quarter: 2004Q1

REPORT INFORMATION
  Report Type: 
  Country: None (occurrence: None)
  Receive Date: 20040310
  Receipt Date: 20040224
  Transmission Date: 20041129
  Serious: Yes (Other)
  Sender: FDA-Public Use
  Company Number: US-JNJFOC-20031000970

PATIENT
  Age: 68 Year
  Sex: Female
  Weight: 61.2356 kg

DRUGS (12)
  1. INFLIXIMAB (INFLIXIMAB, RECOMBINANT) LYOPHILIZED POWDER [Suspect]
     Indication: RHEUMATOID ARTHRITIS
     Dosage: 1 IN 1 DAY, INTRAVENOUS
     Route: 042
     Dates: start: 20010817
  2. METHOTREXATE [Concomitant]
  3. NAPROXEN [Concomitant]
  4. FOLIC ACID [Concomitant]
  5. FOSAMAX [Concomitant]
  6. RENOVA (TRETINOIN) [Concomitant]
  7. GLUCOSAMINE/CHRONDOITIN (GLUCOSAMINE) [Concomitant]
  8. ALLERGY INJECTIONS (ALLERGY MEDICATION) [Concomitant]
  9. CITROCEL (LAXATIVES) [Concomitant]
  10. MULTIVITAMIN [Concomitant]
  11. VITAMIN E [Concomitant]
  12. VITAMIN C (ASCORBIC ACID) [Concomitant]

REACTIONS (3)
  - RASH [None]
  - SKIN INFECTION [None]
  - SKIN ULCER HAEMORRHAGE [None]
